FAERS Safety Report 5157205-4 (Version None)
Quarter: 2006Q4

REPORT INFORMATION
  Report Type: 
  Country: None (occurrence: None)
  Receive Date: 20061127
  Receipt Date: 20061113
  Transmission Date: 20070319
  Serious: Yes (Hospitalization, Disabling)
  Sender: FDA-Public Use
  Company Number: PHRM2006FR03066

PATIENT
  Age: 35 Year
  Sex: Female
  Weight: 50 kg

DRUGS (6)
  1. HUMIRA [Suspect]
     Indication: RHEUMATOID ARTHRITIS
     Dosage: 40 MG, BIW
     Route: 058
     Dates: start: 20050902, end: 20060615
  2. NOVATREX [Suspect]
     Indication: RHEUMATOID ARTHRITIS
     Dosage: 5 MG, 5QD
     Route: 048
     Dates: end: 20060615
  3. DAFALGAN [Concomitant]
     Indication: RHEUMATOID ARTHRITIS
     Dosage: UNK, PRN
     Route: 048
  4. SPECIAFOLDINE [Concomitant]
     Dosage: 10 MG/DAY
     Route: 048
     Dates: end: 20060615
  5. VOLTAREN [Suspect]
     Indication: RHEUMATOID ARTHRITIS
     Route: 048
     Dates: end: 20060615
  6. CORTANCYL [Suspect]
     Indication: RHEUMATOID ARTHRITIS
     Dosage: 5 MG, QW
     Route: 048
     Dates: end: 20060615

REACTIONS (19)
  - ABDOMINAL DISTENSION [None]
  - ABDOMINAL PAIN [None]
  - ASCITES [None]
  - ASTHENIA [None]
  - BLOOD ALKALINE PHOSPHATASE INCREASED [None]
  - C-REACTIVE PROTEIN INCREASED [None]
  - CHEST X-RAY ABNORMAL [None]
  - CHILLS [None]
  - CHOLESTASIS [None]
  - COUGH [None]
  - DIARRHOEA [None]
  - GAMMA-GLUTAMYLTRANSFERASE INCREASED [None]
  - GENERAL PHYSICAL HEALTH DETERIORATION [None]
  - GRANULOMA [None]
  - INFLAMMATION [None]
  - PARACENTESIS [None]
  - PLEURAL EFFUSION [None]
  - PYREXIA [None]
  - WEIGHT DECREASED [None]
